FAERS Safety Report 8434880-X (Version None)
Quarter: 2012Q2

REPORT INFORMATION
  Report Type: 
  Country: None (occurrence: None)
  Receive Date: 20120608
  Receipt Date: 20120531
  Transmission Date: 20120825
  Serious: Yes (Other)
  Sender: FDA-Public Use
  Company Number: FK201201519

PATIENT
  Age: 46 Year
  Sex: Male

DRUGS (2)
  1. MANNITOL [Suspect]
     Indication: SCAN WITH CONTRAST
     Dosage: 1000 ML, SCAN PREPARATION, ORAL
     Route: 048
  2. IOHEXOL (IOHEXOL) [Suspect]
     Indication: SCAN WITH CONTRAST
     Dosage: 370 MG, PER ML, INTRAVENOUS (NOT OTHERWISE SPECIFIED)
     Route: 042

REACTIONS (2)
  - SMALL BOWEL ANGIOEDEMA [None]
  - ANAPHYLACTIC REACTION [None]
